FAERS Safety Report 19729207 (Version 1)
Quarter: 2021Q3

REPORT INFORMATION
  Report Type: Report from Study
  Country: CA (occurrence: CA)
  Receive Date: 20210820
  Receipt Date: 20210820
  Transmission Date: 20211014
  Serious: Yes (Other)
  Sender: FDA-Public Use
  Company Number: CA-JNJFOC-20210829634

PATIENT
  Age: 61 Year
  Sex: Female
  Weight: 69.2 kg

DRUGS (3)
  1. SIMPONI [Suspect]
     Active Substance: GOLIMUMAB
     Indication: COLITIS ULCERATIVE
  2. AZATHIOPRINE. [Concomitant]
     Active Substance: AZATHIOPRINE
     Indication: COLITIS ULCERATIVE
     Route: 048
  3. SIMPONI [Suspect]
     Active Substance: GOLIMUMAB
     Indication: ANKYLOSING SPONDYLITIS
     Dosage: STRENGTH = 100 MG
     Route: 058
     Dates: start: 20210728

REACTIONS (4)
  - Diarrhoea [Unknown]
  - Fatigue [Recovered/Resolved]
  - Sinus pain [Unknown]
  - Haematochezia [Unknown]

NARRATIVE: CASE EVENT DATE: 202107
